FAERS Safety Report 15154586 (Version 1)
Quarter: 2018Q3

REPORT INFORMATION
  Report Type: Report from Study
  Country: BR (occurrence: BR)
  Receive Date: 20180717
  Receipt Date: 20180717
  Transmission Date: 20181010
  Serious: Yes (Life-Threatening, Hospitalization, Other)
  Sender: FDA-Public Use
  Company Number: PHHY2018BR047752

PATIENT
  Sex: Male

DRUGS (3)
  1. SALINE [Concomitant]
     Active Substance: SODIUM CHLORIDE
     Indication: PRODUCT USED FOR UNKNOWN INDICATION
     Route: 065
  2. EXELON PATCH [Suspect]
     Active Substance: RIVASTIGMINE
     Indication: MEMORY IMPAIRMENT
     Dosage: 4.6 MG, QD, PATCH (5CM2) (APPROXIMATELY 4 MONTHS AGO)
     Route: 062
  3. EXELON PATCH [Suspect]
     Active Substance: RIVASTIGMINE
     Dosage: 9.6 MG, QD, PATCH (10 CM2) (1 MONTH AGO)
     Route: 062

REACTIONS (14)
  - Haemorrhage [Recovering/Resolving]
  - Loss of consciousness [Recovering/Resolving]
  - Kidney infection [Unknown]
  - Coma [Recovering/Resolving]
  - Pneumonia [Recovering/Resolving]
  - Fall [Recovering/Resolving]
  - Cerebral thrombosis [Recovering/Resolving]
  - Syncope [Unknown]
  - Urinary tract infection [Unknown]
  - Injury [Recovering/Resolving]
  - Vasodilatation [Recovering/Resolving]
  - Abdominal discomfort [Unknown]
  - Somnolence [Recovering/Resolving]
  - Gait inability [Unknown]
